FAERS Safety Report 4781675-4 (Version None)
Quarter: 2005Q3

REPORT INFORMATION
  Report Type: 
  Country: None (occurrence: None)
  Receive Date: 20050927
  Receipt Date: 20050912
  Transmission Date: 20060218
  Serious: Yes (Hospitalization)
  Sender: FDA-Public Use
  Company Number: 2005-01936

PATIENT
  Age: 68 Year
  Sex: Female

DRUGS (4)
  1. VELCADE [Suspect]
     Indication: MULTIPLE MYELOMA
     Dosage: 1.30 MG/M2, INTRAVENOUS
     Route: 042
     Dates: start: 20050208, end: 20050715
  2. HYDROMORPH CONTIN                        (HYDROMORPHONE HYDROCHLORIDE) [Concomitant]
  3. CYCLOGYL               (CYCLOPENTOLATE HYDROCHLORIDE) [Concomitant]
  4. PRED-FORTE               (PREDNISOLONE ACETATE) [Concomitant]

REACTIONS (24)
  - ARRHYTHMIA [None]
  - AUTOIMMUNE DISORDER [None]
  - BRADYCARDIA [None]
  - BRONCHIECTASIS [None]
  - BUNDLE BRANCH BLOCK LEFT [None]
  - BUNDLE BRANCH BLOCK RIGHT [None]
  - CELLULITIS [None]
  - DIZZINESS [None]
  - DYSPNOEA [None]
  - HAEMORRHAGE [None]
  - HEADACHE [None]
  - HYPERSENSITIVITY [None]
  - HYPONATRAEMIA [None]
  - LOCAL SWELLING [None]
  - LUNG DISORDER [None]
  - NAUSEA [None]
  - OPPORTUNISTIC INFECTION [None]
  - PLEURAL DISORDER [None]
  - PNEUMONIA [None]
  - PULMONARY HYPERTENSION [None]
  - SCAR [None]
  - TUBERCULOSIS [None]
  - VENTRICULAR DYSFUNCTION [None]
  - VENTRICULAR HYPERTROPHY [None]
